FAERS Safety Report 5490555-0 (Version None)
Quarter: 2007Q4

REPORT INFORMATION
  Report Type: 
  Country: None (occurrence: None)
  Receive Date: 20071019
  Receipt Date: 20071011
  Transmission Date: 20080405
  Serious: Yes (Other)
  Sender: FDA-Public Use
  Company Number: DE-WYE-G00455907

PATIENT
  Age: 50 Year
  Sex: Female

DRUGS (3)
  1. VENLAFAXINE HCL [Suspect]
     Dosage: 375 MG
     Route: 048
  2. VENLAFAXINE HCL [Suspect]
     Dosage: 225 MG
     Route: 048
  3. VENLAFAXINE HCL [Suspect]
     Dosage: 150 MG
     Route: 048

REACTIONS (5)
  - DYSKINESIA [None]
  - MUSCLE SPASMS [None]
  - PARAESTHESIA [None]
  - PARALYSIS [None]
  - SPEECH DISORDER [None]
